FAERS Safety Report 4421033-5 (Version None)
Quarter: 2004Q3

REPORT INFORMATION
  Report Type: 
  Country: None (occurrence: None)
  Receive Date: 20040809
  Receipt Date: 20040317
  Transmission Date: 20050211
  Serious: Yes (Death)
  Sender: FDA-Public Use
  Company Number: MY-GLAXOSMITHKLINE-B0341488A

PATIENT
  Age: 57 Year
  Sex: Male

DRUGS (3)
  1. ADEFOVIR [Suspect]
     Indication: HEPATITIS B
     Dosage: 10MG PER DAY
  2. LAMIVUDINE [Suspect]
     Indication: HEPATITIS B
     Dosage: 100MG PER DAY
     Route: 048
     Dates: end: 20040215
  3. PRAVASTATIN [Concomitant]

REACTIONS (9)
  - ALANINE AMINOTRANSFERASE INCREASED [None]
  - ASPARTATE AMINOTRANSFERASE INCREASED [None]
  - BLOOD ALBUMIN DECREASED [None]
  - BLOOD ALKALINE PHOSPHATASE INCREASED [None]
  - BLOOD BILIRUBIN INCREASED [None]
  - DRUG INEFFECTIVE [None]
  - GLOBULINS DECREASED [None]
  - HEPATIC FAILURE [None]
  - HEPATITIS B [None]
